FAERS Safety Report 7429661-X (Version None)
Quarter: 2011Q2

REPORT INFORMATION
  Report Type: 
  Country: None (occurrence: None)
  Receive Date: 20110421
  Receipt Date: 20110414
  Transmission Date: 20111010
  Serious: Yes (Hospitalization)
  Sender: FDA-Public Use
  Company Number: NL-MEDIMMUNE-MEDI-0013100

PATIENT
  Sex: Female

DRUGS (2)
  1. SYNAGIS [Suspect]
     Route: 030
     Dates: start: 20110117, end: 20110314
  2. SYNAGIS [Suspect]
     Route: 030
     Dates: start: 20110414, end: 20110414

REACTIONS (3)
  - VIRAL INFECTION [None]
  - URINARY TRACT INFECTION [None]
  - DIARRHOEA [None]
